FAERS Safety Report 10069115 (Version 1)
Quarter: 2014Q2

REPORT INFORMATION
  Report Type: Spontaneous
  Country: US (occurrence: US)
  Receive Date: 20140409
  Receipt Date: 20140409
  Transmission Date: 20141212
  Serious: No
  Sender: FDA-Public Use
  Company Number: US-009507513-1404USA000314

PATIENT
  Sex: 0

DRUGS (2)
  1. NEXPLANON [Suspect]
     Dosage: UNK
     Route: 059
     Dates: start: 2014, end: 2014
  2. NEXPLANON [Suspect]
     Dosage: UNK
     Route: 059
     Dates: start: 2014

REACTIONS (3)
  - Device difficult to use [Recovered/Resolved]
  - Needle issue [Unknown]
  - No adverse event [Unknown]
